FAERS Safety Report 7097991-X (Version None)
Quarter: 2010Q4

REPORT INFORMATION
  Report Type: 
  Country: None (occurrence: None)
  Receive Date: 20101112
  Receipt Date: 20101005
  Transmission Date: 20110411
  Serious: No
  Sender: FDA-Public Use
  Company Number: US-BAYER-200919920NA

PATIENT
  Age: 19 Year
  Sex: Female

DRUGS (2)
  1. MIRENA [Suspect]
     Indication: CONTRACEPTION
     Dosage: CONTINUOUS
     Route: 015
     Dates: start: 20080506
  2. ZITHROMAX [Concomitant]
     Indication: CHLAMYDIAL INFECTION

REACTIONS (1)
  - PREGNANCY WITH CONTRACEPTIVE DEVICE [None]
